FAERS Safety Report 8419203-4 (Version None)
Quarter: 2012Q2

REPORT INFORMATION
  Report Type: 
  Country: None (occurrence: None)
  Receive Date: 20120607
  Receipt Date: 20120507
  Transmission Date: 20120825
  Serious: No
  Sender: FDA-Public Use
  Company Number: US-BAYER-2012-046799

PATIENT
  Sex: Male

DRUGS (1)
  1. FINACEA [Suspect]

REACTIONS (2)
  - DRUG INEFFECTIVE [None]
  - SKIN IRRITATION [None]
